FAERS Safety Report 18735329 (Version 1)
Quarter: 2021Q1

REPORT INFORMATION
  Report Type: Spontaneous
  Country: US (occurrence: US)
  Receive Date: 20210113
  Receipt Date: 20210113
  Transmission Date: 20210419
  Serious: No
  Sender: FDA-Public Use
  Company Number: None

PATIENT
  Sex: Male

DRUGS (1)
  1. HUMIRA [Suspect]
     Active Substance: ADALIMUMAB
     Indication: COLITIS ULCERATIVE
     Route: 058
     Dates: start: 20200401

REACTIONS (6)
  - Feeling abnormal [None]
  - Aspartate aminotransferase increased [None]
  - Symptom recurrence [None]
  - Alanine aminotransferase increased [None]
  - Disturbance in attention [None]
  - Therapy cessation [None]
